FAERS Safety Report 8332495-5 (Version None)
Quarter: 2012Q2

REPORT INFORMATION
  Report Type: 
  Country: None (occurrence: None)
  Receive Date: 20120503
  Receipt Date: 20120501
  Transmission Date: 20120825
  Serious: No
  Sender: FDA-Public Use
  Company Number: US-PFIZER INC-2012094337

PATIENT
  Sex: Female
  Weight: 62.1 kg

DRUGS (3)
  1. LO/OVRAL-28 [Suspect]
     Indication: MIGRAINE
  2. THYROID TAB [Concomitant]
     Indication: HYPOTHYROIDISM
     Dosage: UNK
  3. LO/OVRAL-28 [Suspect]
     Indication: OFF LABEL USE
     Dosage: UNK, 1X/DAY
     Route: 048

REACTIONS (2)
  - PRODUCT QUALITY ISSUE [None]
  - DRUG INEFFECTIVE FOR UNAPPROVED INDICATION [None]
